FAERS Safety Report 5073605-5 (Version None)
Quarter: 2006Q3

REPORT INFORMATION
  Report Type: 
  Country: None (occurrence: None)
  Receive Date: 20060808
  Receipt Date: 20060711
  Transmission Date: 20061208
  Serious: Yes (Other)
  Sender: FDA-Public Use
  Company Number: JP-JPN-A200602585

PATIENT
  Age: 44 Year
  Sex: Male
  Weight: 69 kg

DRUGS (10)
  1. PAXIL [Suspect]
     Indication: ANXIETY
     Dosage: 10MG PER DAY
     Route: 048
     Dates: start: 20060516, end: 20060705
  2. MYONAL [Concomitant]
     Route: 048
  3. LENDORMIN [Concomitant]
     Indication: INSOMNIA
     Dosage: 1U PER DAY
     Route: 048
     Dates: start: 20060606
  4. PURSENNID [Concomitant]
     Indication: CONSTIPATION
     Dosage: 2U PER DAY
     Route: 048
     Dates: start: 20060606
  5. GASTER [Concomitant]
     Indication: GASTRIC ULCER
     Dosage: 1U PER DAY
     Route: 048
     Dates: start: 20060622
  6. VOLTAREN [Concomitant]
     Indication: PAIN
     Route: 054
     Dates: start: 20060509
  7. LORCAM [Concomitant]
     Indication: PAIN
     Dosage: 3U PER DAY
     Route: 048
     Dates: start: 20060418
  8. KETOPROFEN [Concomitant]
     Indication: PAIN
     Route: 062
     Dates: start: 20051115
  9. UNKNOWN DRUG [Concomitant]
     Dates: start: 20060630
  10. IOHEXOL [Concomitant]
     Dates: start: 20060628

REACTIONS (4)
  - BLOOD CREATINE PHOSPHOKINASE INCREASED [None]
  - CONVULSIONS LOCAL [None]
  - HYPOAESTHESIA [None]
  - PAIN [None]
